FAERS Safety Report 7753655-8 (Version None)
Quarter: 2011Q3

REPORT INFORMATION
  Report Type: 
  Country: None (occurrence: None)
  Receive Date: 20110915
  Receipt Date: 20110905
  Transmission Date: 20111222
  Serious: Yes (Death, Hospitalization)
  Sender: FDA-Public Use
  Company Number: DE-CELGENEUS-AZADE200800035

PATIENT
  Age: 68 Year
  Sex: Female
  Weight: 43 kg

DRUGS (4)
  1. ESOMEPRAZOLE SODIUM [Concomitant]
     Route: 065
  2. COTRIM DS [Concomitant]
     Route: 065
  3. VIDAZA [Suspect]
     Indication: ACUTE MYELOID LEUKAEMIA
     Route: 058
     Dates: start: 20071205, end: 20071211
  4. ACYCLOVIR [Concomitant]
     Route: 065

REACTIONS (5)
  - INTESTINAL INFARCTION [None]
  - AGRANULOCYTOSIS [None]
  - THROMBOCYTOPENIA [None]
  - CONFUSIONAL STATE [None]
  - ANAEMIA [None]
